FAERS Safety Report 6037747-X (Version None)
Quarter: 2009Q1

REPORT INFORMATION
  Report Type: 
  Country: None (occurrence: None)
  Receive Date: 20090114
  Receipt Date: 20090113
  Transmission Date: 20090719
  Serious: Yes (Other)
  Sender: FDA-Public Use
  Company Number: US-MERCK-0807USA01389

PATIENT
  Age: 6 Year
  Sex: Male

DRUGS (3)
  1. SINGULAIR [Suspect]
     Route: 048
     Dates: start: 20080104, end: 20080611
  2. ALBUTEROL [Concomitant]
  3. ZYRTEC [Concomitant]
     Route: 065
     Dates: end: 20080701

REACTIONS (5)
  - ANGER [None]
  - DEPRESSION [None]
  - HOMICIDAL IDEATION [None]
  - MOOD ALTERED [None]
  - SUICIDAL IDEATION [None]
